FAERS Safety Report 5577789-1 (Version None)
Quarter: 2007Q4

REPORT INFORMATION
  Report Type: 
  Country: None (occurrence: None)
  Receive Date: 20071227
  Receipt Date: 20071210
  Transmission Date: 20080405
  Serious: Yes (Hospitalization, Other)
  Sender: FDA-Public Use
  Company Number: 02100-EUR-07-0176

PATIENT
  Age: 81 Year
  Sex: Male

DRUGS (9)
  1. CILOSTAZOL [Suspect]
     Indication: INTERMITTENT CLAUDICATION
     Dosage: 200 MG
     Route: 048
     Dates: start: 20070123, end: 20070401
  2. CILOSTAZOL [Suspect]
     Indication: PERIPHERAL ARTERIAL OCCLUSIVE DISEASE
     Dosage: 200 MG
     Route: 048
     Dates: start: 20070123, end: 20070401
  3. BISOPROLOL FUMARATE [Concomitant]
  4. TORSEMIDE [Concomitant]
  5. CARBAMAZEPINE [Concomitant]
  6. METFORMIN HCL [Concomitant]
  7. RAMIPRIL [Concomitant]
  8. FLUVASTATIN [Concomitant]
  9. AMLODIPINE BESYLATE [Concomitant]

REACTIONS (4)
  - BLOOD THYROID STIMULATING HORMONE DECREASED [None]
  - INTERNATIONAL NORMALISED RATIO INCREASED [None]
  - ISCHAEMIC STROKE [None]
  - PROTHROMBIN TIME PROLONGED [None]
